FAERS Safety Report 24072609 (Version 1)
Quarter: 2024Q3

REPORT INFORMATION
  Report Type: Spontaneous
  Country: GB (occurrence: GB)
  Receive Date: 20240710
  Receipt Date: 20240710
  Transmission Date: 20241016
  Serious: Yes (Hospitalization)
  Sender: MYLAN
  Company Number: GB-MYLANLABS-2024M1063739

PATIENT
  Age: 6 Decade
  Sex: Female

DRUGS (6)
  1. CETIRIZINE [Suspect]
     Active Substance: CETIRIZINE HYDROCHLORIDE
     Indication: Solar urticaria
     Dosage: 10 MILLIGRAM, TID, THREE TIMES A DAY
     Route: 065
     Dates: start: 2007
  2. CYCLOSPORINE [Suspect]
     Active Substance: CYCLOSPORINE
     Indication: Solar urticaria
     Dosage: 150 MILLIGRAM, BID
     Route: 065
     Dates: start: 2009
  3. FEXOFENADINE [Suspect]
     Active Substance: FEXOFENADINE HYDROCHLORIDE
     Indication: Solar urticaria
     Dosage: 120 MILLIGRAM, TID, THREE TIMES A DAY
     Route: 065
     Dates: start: 2007
  4. METHOTREXATE [Suspect]
     Active Substance: METHOTREXATE
     Indication: Solar urticaria
     Dosage: 15-17.5 MG , QW
     Route: 065
     Dates: start: 200905
  5. HYDROXYCHLOROQUINE [Suspect]
     Active Substance: HYDROXYCHLOROQUINE
     Indication: Solar urticaria
     Dosage: 250 MILLIGRAM, QD
     Route: 065
     Dates: start: 200905
  6. PERINDOPRIL [Suspect]
     Active Substance: PERINDOPRIL
     Indication: Solar urticaria
     Dosage: 4 MILLIGRAM, QD
     Route: 065
     Dates: start: 200905

REACTIONS (2)
  - Drug ineffective [Unknown]
  - Off label use [Unknown]
